FAERS Safety Report 22063700 (Version 1)
Quarter: 2023Q1

REPORT INFORMATION
  Report Type: Spontaneous
  Country: HU (occurrence: HU)
  Receive Date: 20230306
  Receipt Date: 20230306
  Transmission Date: 20230418
  Serious: Yes (Other)
  Sender: FDA-Public Use
  Company Number: HU-EUSA PHARMA (UK) LIMITED-2023HU000035

PATIENT

DRUGS (4)
  1. SYLVANT [Suspect]
     Active Substance: SILTUXIMAB
     Indication: Castleman^s disease
     Dosage: CUMULATIVE DOSE 800MG; AMOUNT OF INFUSION 500ML
     Route: 065
     Dates: start: 20221128, end: 20221128
  2. SOLU-MEDROL [Concomitant]
     Active Substance: METHYLPREDNISOLONE SODIUM SUCCINATE
     Indication: Product used for unknown indication
     Dosage: 80 MG
     Route: 042
  3. ACETAMINOPHEN [Concomitant]
     Active Substance: ACETAMINOPHEN
     Indication: Product used for unknown indication
     Dosage: 500 MG
     Route: 065
  4. CETIRIZINE HYDROCHLORIDE [Concomitant]
     Active Substance: CETIRIZINE HYDROCHLORIDE
     Indication: Product used for unknown indication
     Dosage: 1
     Route: 065

REACTIONS (2)
  - Thrombocytopenia [Recovered/Resolved]
  - Haemoglobin increased [Unknown]

NARRATIVE: CASE EVENT DATE: 20221212
